FAERS Safety Report 17926397 (Version 2)
Quarter: 2020Q3

REPORT INFORMATION
  Report Type: Spontaneous
  Country: US (occurrence: US)
  Receive Date: 20200623
  Receipt Date: 20200805
  Transmission Date: 20201103
  Serious: No
  Sender: FDA-Public Use
  Company Number: US-INCYTE CORPORATION-2020IN005791

PATIENT

DRUGS (1)
  1. JAKAFI [Suspect]
     Active Substance: RUXOLITINIB
     Indication: MYELOFIBROSIS
     Dosage: 20 MILLIGRAM, BID
     Route: 048
     Dates: start: 20190321

REACTIONS (4)
  - White blood cell count increased [Recovered/Resolved]
  - Blast cells present [Recovered/Resolved]
  - Abnormal dreams [Recovered/Resolved]
  - Platelet count decreased [Recovered/Resolved]
